FAERS Safety Report 4807845-4 (Version None)
Quarter: 2005Q4

REPORT INFORMATION
  Report Type: 
  Country: None (occurrence: None)
  Receive Date: 20051020
  Receipt Date: 20051010
  Transmission Date: 20060501
  Serious: Yes (Hospitalization)
  Sender: FDA-Public Use
  Company Number: 2005141480

PATIENT
  Age: 66 Year
  Sex: Male

DRUGS (3)
  1. LINEZOLID SOLUTION, STERILE (LINEZOLID) [Suspect]
     Indication: PATHOGEN RESISTANCE
     Dosage: 1200 MG (600 MG, BID)
  2. LINEZOLID SOLUTION, STERILE (LINEZOLID) [Suspect]
     Indication: STAPHYLOCOCCAL INFECTION
     Dosage: 1200 MG (600 MG, BID)
  3. VANCOMYCIN [Concomitant]

REACTIONS (5)
  - ANAEMIA [None]
  - BONE MARROW FAILURE [None]
  - CARDIAC FAILURE [None]
  - DYSPLASIA [None]
  - ERYTHROPOIESIS ABNORMAL [None]
